FAERS Safety Report 11985416 (Version 1)
Quarter: 2016Q1

REPORT INFORMATION
  Report Type: Report from Study
  Country: NL (occurrence: NL)
  Receive Date: 20160201
  Receipt Date: 20160201
  Transmission Date: 20160526
  Serious: Yes (Life-Threatening, Other)
  Sender: FDA-Public Use
  Company Number: NL-BAXALTA-2016BLT000366

PATIENT
  Age: 34 Year
  Sex: Male

DRUGS (6)
  1. KIOVIG 100 MG/ML [Suspect]
     Active Substance: HUMAN IMMUNOGLOBULIN G
     Dosage: UNK UNK, EVERY 28 DAYS
     Route: 042
     Dates: start: 20160122
  2. KIOVIG 100 MG/ML [Suspect]
     Active Substance: HUMAN IMMUNOGLOBULIN G
     Indication: IMMUNODEFICIENCY COMMON VARIABLE
     Dosage: UNK UNK, EVERY 28 DAYS
     Route: 042
     Dates: start: 201510
  3. KIOVIG 100 MG/ML [Suspect]
     Active Substance: HUMAN IMMUNOGLOBULIN G
     Dosage: UNK, EVERY 28 DAYS
     Route: 042
     Dates: start: 20151222
  4. KIOVIG 100 MG/ML [Suspect]
     Active Substance: HUMAN IMMUNOGLOBULIN G
     Dosage: UNK UNK, EVERY 28 DAYS
     Route: 042
     Dates: start: 20160122
  5. KIOVIG 100 MG/ML [Suspect]
     Active Substance: HUMAN IMMUNOGLOBULIN G
     Dosage: UNK UNK, EVERY 28 DAYS
     Route: 042
     Dates: start: 20160122
  6. KIOVIG 100 MG/ML [Suspect]
     Active Substance: HUMAN IMMUNOGLOBULIN G
     Dosage: UNK, EVERY 28 DAYS
     Route: 042
     Dates: start: 20151222

REACTIONS (3)
  - Hypotension [Recovered/Resolved]
  - Shock symptom [Unknown]
  - Blood pressure decreased [Recovered/Resolved]

NARRATIVE: CASE EVENT DATE: 201510
